FAERS Safety Report 6233072-2 (Version None)
Quarter: 2009Q2

REPORT INFORMATION
  Report Type: 
  Country: None (occurrence: None)
  Receive Date: 20090617
  Receipt Date: 20090611
  Transmission Date: 20091009
  Serious: Yes (Other)
  Sender: FDA-Public Use
  Company Number: US-TEVA-189854USA

PATIENT
  Sex: Female

DRUGS (2)
  1. CLARAVIS [Suspect]
     Route: 048
     Dates: start: 20080901, end: 20090308
  2. YASMIN [Concomitant]
     Indication: CONTRACEPTION
     Route: 048

REACTIONS (2)
  - ABORTION INDUCED [None]
  - UNINTENDED PREGNANCY [None]
